FAERS Safety Report 5971364-2 (Version None)
Quarter: 2008Q4

REPORT INFORMATION
  Report Type: 
  Country: None (occurrence: None)
  Receive Date: 20081130
  Receipt Date: 20081120
  Transmission Date: 20090506
  Serious: Yes (Other)
  Sender: FDA-Public Use
  Company Number: FR-PFIZER INC-2008099051

PATIENT
  Sex: Female

DRUGS (7)
  1. SOLU-MEDROL [Suspect]
     Dosage: TEXT:40 MG/ 2ML
     Route: 042
     Dates: start: 20080922
  2. ROCEPHIN [Suspect]
     Dosage: TEXT:2 G DAILY EVERY DAY TDD:2 G
     Dates: start: 20080923, end: 20080925
  3. BACTRIM [Suspect]
     Dosage: TEXT:EVERY DAY TDD:12
     Route: 042
     Dates: start: 20080922, end: 20080925
  4. FOSCAVIR [Suspect]
     Dosage: TEXT:EVERY DAY TDD:6 G
     Route: 042
     Dates: start: 20080923, end: 20080925
  5. HYPNOVEL [Suspect]
     Route: 042
     Dates: start: 20080923
  6. SUFENTANIL CITRATE [Suspect]
     Route: 042
     Dates: start: 20080923
  7. ROVAMYCINE [Suspect]
     Dates: start: 20080923, end: 20080924

REACTIONS (2)
  - BONE MARROW FAILURE [None]
  - CONDITION AGGRAVATED [None]
